FAERS Safety Report 10099517 (Version 1)
Quarter: 2014Q2

REPORT INFORMATION
  Report Type: Spontaneous
  Country: US (occurrence: US)
  Receive Date: 20140423
  Receipt Date: 20140423
  Transmission Date: 20141212
  Serious: Yes (Other)
  Sender: FDA-Public Use
  Company Number: US-BAYER-2014-057683

PATIENT
  Sex: Male

DRUGS (1)
  1. ULTRAVIST [Suspect]
     Indication: SWELLING
     Dosage: 50 ML, ONCE

REACTIONS (6)
  - Hypersensitivity [None]
  - Flushing [None]
  - Hypertension [None]
  - Tremor [None]
  - Urticaria [None]
  - Dysphagia [None]
